FAERS Safety Report 8766834 (Version 2)
Quarter: 2013Q1

REPORT INFORMATION
  Report Type: Spontaneous
  Country: US (occurrence: US)
  Receive Date: 20120904
  Receipt Date: 20130125
  Transmission Date: 20140127
  Serious: Yes (Hospitalization)
  Sender: FDA-Public Use
  Company Number: US-GILEAD-2012-0060538

PATIENT
  Sex: Female

DRUGS (18)
  1. LETAIRIS [Suspect]
     Indication: PULMONARY HYPERTENSION
     Dosage: 10 MG, UNK
     Route: 048
     Dates: start: 20110607
  2. OXYGEN [Concomitant]
  3. ALTACE [Concomitant]
  4. CALCIUM [Concomitant]
  5. ISOSORBIDE [Concomitant]
  6. LASIX                              /00032601/ [Concomitant]
  7. LIPITOR [Concomitant]
  8. NEURONTIN [Concomitant]
  9. NORVASC [Concomitant]
  10. PRILOSEC                           /00661201/ [Concomitant]
  11. ATROVENT HFA [Concomitant]
  12. ASPIRIN (E.C.) [Concomitant]
  13. MOBIC [Concomitant]
  14. ULTRAM [Concomitant]
  15. BUSPIRONE HCL [Concomitant]
  16. MIRAPEX [Concomitant]
  17. MIRALAX                            /00754501/ [Concomitant]
  18. LACTULOSE [Concomitant]

REACTIONS (1)
  - Bowel movement irregularity [Recovered/Resolved]
